FAERS Safety Report 23542682 (Version 1)
Quarter: 2024Q1

REPORT INFORMATION
  Report Type: Spontaneous
  Country: US (occurrence: US)
  Receive Date: 20240220
  Receipt Date: 20240220
  Transmission Date: 20240410
  Serious: Yes (Other)
  Sender: FDA-Public Use
  Company Number: US-CELLTRION INC.-2024US003666

PATIENT

DRUGS (5)
  1. INFLECTRA [Suspect]
     Active Substance: INFLIXIMAB-DYYB
     Indication: Product used for unknown indication
  2. ADALIMUMAB [Suspect]
     Active Substance: ADALIMUMAB\ISOPROPYL ALCOHOL
     Indication: Product used for unknown indication
  3. HUMIRA [Suspect]
     Active Substance: ADALIMUMAB
     Indication: Irritable bowel syndrome
     Route: 058
  4. HUMIRA [Suspect]
     Active Substance: ADALIMUMAB
     Indication: Cholangitis sclerosing
  5. ENTYVIO [Suspect]
     Active Substance: VEDOLIZUMAB
     Indication: Product used for unknown indication
     Route: 065

REACTIONS (6)
  - Colitis [Unknown]
  - Illness [Unknown]
  - Anaemia [Unknown]
  - Weight decreased [Unknown]
  - Drug ineffective [Unknown]
  - Drug ineffective [Unknown]
